FAERS Safety Report 20566128 (Version 1)
Quarter: 2022Q1

REPORT INFORMATION
  Report Type: Spontaneous
  Country: CA (occurrence: CA)
  Receive Date: 20220308
  Receipt Date: 20220308
  Transmission Date: 20220423
  Serious: Yes (Hospitalization)
  Sender: FDA-Public Use
  Company Number: CA-TEVA-2022-CA-2013473

PATIENT
  Age: 87 Year
  Sex: Male

DRUGS (3)
  1. HYDROCHLOROTHIAZIDE [Suspect]
     Active Substance: HYDROCHLOROTHIAZIDE
     Route: 065
  2. IRBESARTAN [Suspect]
     Active Substance: IRBESARTAN
  3. ANTINEOPLASTIC(S) [Concomitant]

REACTIONS (1)
  - Hypotension [Unknown]
